FAERS Safety Report 13222814 (Version 1)
Quarter: 2017Q1

REPORT INFORMATION
  Report Type: Other
  Country: US (occurrence: US)
  Receive Date: 20170212
  Receipt Date: 20170212
  Transmission Date: 20170428
  Serious: Yes (Hospitalization, Disabling)
  Sender: FDA-Public Use
  Company Number: US-ACORDA-ACO_122722_2016

PATIENT
  Sex: Female

DRUGS (1)
  1. AMPYRA [Suspect]
     Active Substance: DALFAMPRIDINE
     Indication: GAIT DISTURBANCE
     Dosage: 10 MG, UNK
     Route: 048

REACTIONS (5)
  - Arthropathy [Unknown]
  - Adverse drug reaction [Unknown]
  - Gait disturbance [Unknown]
  - Emotional distress [Unknown]
  - Therapy cessation [Unknown]

NARRATIVE: CASE EVENT DATE: 201412
